FAERS Safety Report 9077592 (Version 1)
Quarter: 2013Q1

REPORT INFORMATION
  Report Type: Spontaneous
  Country: CA (occurrence: CA)
  Receive Date: 20130130
  Receipt Date: 20130130
  Transmission Date: 20140127
  Serious: Yes (Death)
  Sender: FDA-Public Use
  Company Number: PHHY2013CA008368

PATIENT
  Age: 38 Year
  Sex: Female

DRUGS (19)
  1. CLOZARIL [Suspect]
     Dosage: 300 MG, QD
     Route: 048
  2. CLOZARIL [Suspect]
     Dosage: 350 MG, QD
     Route: 048
  3. CLOZARIL [Suspect]
     Dosage: 300 MG, QD
  4. ACETAMINOPHEN [Concomitant]
  5. BENZTROPINE MESYLATE [Concomitant]
  6. DIOVOL [Concomitant]
  7. DEPO-PROVERA [Concomitant]
  8. FENOFIBRATE [Concomitant]
  9. IMODIUM [Concomitant]
  10. LITHIUM [Concomitant]
  11. LOXAPINE [Concomitant]
  12. LORAZEPAM [Concomitant]
  13. METFORMIN [Concomitant]
  14. NICORETTE [Concomitant]
  15. RAMIPRIL [Concomitant]
  16. SALINE [Concomitant]
  17. TRAZODONE [Concomitant]
  18. ZUCLOPENTHIXOL [Concomitant]
  19. VITAMIN D [Concomitant]

REACTIONS (5)
  - Death [Fatal]
  - Unresponsive to stimuli [Unknown]
  - Asthenia [Unknown]
  - Gait disturbance [Unknown]
  - Dizziness [Unknown]
